FAERS Safety Report 5246641-3 (Version None)
Quarter: 2007Q1

REPORT INFORMATION
  Report Type: 
  Country: None (occurrence: None)
  Receive Date: 20070226
  Receipt Date: 20070215
  Transmission Date: 20070707
  Serious: Yes (Hospitalization)
  Sender: FDA-Public Use
  Company Number: BE-AVENTIS-200711413GDDC

PATIENT
  Age: 38 Year
  Sex: Female

DRUGS (4)
  1. ARAVA [Suspect]
     Route: 048
     Dates: start: 20070101, end: 20070101
  2. CORTICOSTEROIDS [Concomitant]
     Dosage: DOSE: UNK
  3. LEDERTREXATE                       /00113801/ [Concomitant]
  4. LEDERTREXATE                       /00113801/ [Concomitant]

REACTIONS (2)
  - NEPHRITIS INTERSTITIAL [None]
  - RENAL FAILURE ACUTE [None]
